FAERS Safety Report 16279359 (Version 1)
Quarter: 2019Q2

REPORT INFORMATION
  Report Type: Spontaneous
  Country: FR (occurrence: FR)
  Receive Date: 20190507
  Receipt Date: 20190507
  Transmission Date: 20190711
  Serious: Yes (Other)
  Sender: FDA-Public Use
  Company Number: FR-PROVELL PHARMACEUTICALS-2066699

PATIENT
  Sex: Female

DRUGS (4)
  1. EUTHYROX [Suspect]
     Active Substance: LEVOTHYROXINE SODIUM
     Indication: POST PROCEDURAL HYPOTHYROIDISM
  2. DIFFU K [Concomitant]
     Active Substance: POTASSIUM CHLORIDE
  3. AERIUS [Concomitant]
  4. QUESTRAN [Concomitant]
     Active Substance: CHOLESTYRAMINE

REACTIONS (6)
  - Cardiopulmonary failure [None]
  - Malaise [None]
  - Alopecia [None]
  - Decreased appetite [None]
  - Feeling abnormal [None]
  - Fatigue [None]
